FAERS Safety Report 16472512 (Version 1)
Quarter: 2019Q2

REPORT INFORMATION
  Report Type: Spontaneous
  Country: AU (occurrence: AU)
  Receive Date: 20190625
  Receipt Date: 20190625
  Transmission Date: 20190711
  Serious: Yes (Other)
  Sender: FDA-Public Use
  Company Number: AU-TEVA-2019-AU-1037694

PATIENT
  Sex: Female

DRUGS (1)
  1. IMATINIB. [Suspect]
     Active Substance: IMATINIB MESYLATE
     Indication: CHRONIC MYELOID LEUKAEMIA
     Dosage: DOSAGE UNKNOWN
     Route: 048
     Dates: start: 2015, end: 2016

REACTIONS (5)
  - Nausea [Unknown]
  - Diarrhoea [Unknown]
  - Liver function test abnormal [Unknown]
  - Weight decreased [Unknown]
  - Drug intolerance [Unknown]
